FAERS Safety Report 20069656 (Version 1)
Quarter: 2021Q4

REPORT INFORMATION
  Report Type: Spontaneous
  Country: US (occurrence: US)
  Receive Date: 20211115
  Receipt Date: 20211115
  Transmission Date: 20220303
  Serious: No
  Sender: FDA-Public Use
  Company Number: US-OptiNose US, Inc-2021OPT000182

PATIENT
  Age: 57 Year
  Sex: Female

DRUGS (2)
  1. XHANCE [Suspect]
     Active Substance: FLUTICASONE PROPIONATE
     Indication: Nasal inflammation
     Route: 045
     Dates: start: 20210604
  2. XHANCE [Suspect]
     Active Substance: FLUTICASONE PROPIONATE
     Route: 045

REACTIONS (4)
  - Feeling jittery [Not Recovered/Not Resolved]
  - Insomnia [Recovered/Resolved]
  - Drug effective for unapproved indication [Unknown]
  - Wrong technique in product usage process [Unknown]

NARRATIVE: CASE EVENT DATE: 20210604
